FAERS Safety Report 12550410 (Version 3)
Quarter: 2016Q3

REPORT INFORMATION
  Report Type: Spontaneous
  Country: US (occurrence: US)
  Receive Date: 20160712
  Receipt Date: 20160901
  Transmission Date: 20161109
  Serious: Yes (Other)
  Sender: FDA-Public Use
  Company Number: US-CELGENEUS-USA-2016066897

PATIENT
  Age: 65 Year
  Sex: Male
  Weight: 68.1 kg

DRUGS (5)
  1. REVLIMID [Suspect]
     Active Substance: LENALIDOMIDE
     Indication: PLASMA CELL MYELOMA
     Route: 048
     Dates: start: 20151218
  2. VELCADE [Concomitant]
     Active Substance: BORTEZOMIB
     Indication: PRODUCT USED FOR UNKNOWN INDICATION
     Route: 065
  3. REVLIMID [Suspect]
     Active Substance: LENALIDOMIDE
     Route: 048
     Dates: start: 201602
  4. REVLIMID [Suspect]
     Active Substance: LENALIDOMIDE
     Route: 048
     Dates: start: 2016
  5. REVLIMID [Suspect]
     Active Substance: LENALIDOMIDE
     Route: 048
     Dates: start: 20160527

REACTIONS (14)
  - Fatigue [Unknown]
  - Fall [Unknown]
  - Head injury [Unknown]
  - Panic attack [Unknown]
  - Urine odour abnormal [Unknown]
  - Dyspnoea exertional [Unknown]
  - Urine output decreased [Unknown]
  - Dizziness [Unknown]
  - Headache [Unknown]
  - Chromaturia [Unknown]
  - Blood pressure fluctuation [Unknown]
  - Depressed mood [Unknown]
  - Loss of consciousness [Unknown]
  - Diarrhoea [Not Recovered/Not Resolved]

NARRATIVE: CASE EVENT DATE: 2016
